APPROVED DRUG PRODUCT: CEFTRIAXONE
Active Ingredient: CEFTRIAXONE SODIUM
Strength: EQ 10GM BASE/VIAL
Dosage Form/Route: INJECTABLE;INJECTION
Application: A065263 | Product #001
Applicant: LUPIN LTD
Approved: Sep 12, 2006 | RLD: No | RS: No | Type: DISCN